FAERS Safety Report 9217618 (Version 1)
Quarter: 2013Q2

REPORT INFORMATION
  Report Type: Spontaneous
  Country: SG (occurrence: SG)
  Receive Date: 20130408
  Receipt Date: 20130408
  Transmission Date: 20140414
  Serious: Yes (Other)
  Sender: FDA-Public Use
  Company Number: SG-PFIZER INC-2013107478

PATIENT
  Age: 75 Year
  Sex: Female

DRUGS (1)
  1. AMLODIPINE BESILATE [Suspect]

REACTIONS (1)
  - Headache [Unknown]
